APPROVED DRUG PRODUCT: ESCITALOPRAM OXALATE
Active Ingredient: ESCITALOPRAM OXALATE
Strength: EQ 20MG BASE
Dosage Form/Route: TABLET;ORAL
Application: A077512 | Product #003
Applicant: AIPING PHARMACEUTICAL INC
Approved: Sep 12, 2012 | RLD: No | RS: No | Type: DISCN